FAERS Safety Report 21156943 (Version 5)
Quarter: 2022Q4

REPORT INFORMATION
  Report Type: Report from Study
  Country: US (occurrence: US)
  Receive Date: 20220801
  Receipt Date: 20221104
  Transmission Date: 20230113
  Serious: No
  Sender: FDA-Public Use
  Company Number: US-NOVARTISTESTPH-NVSC2022US173244

PATIENT
  Sex: Female

DRUGS (1)
  1. KESIMPTA [Suspect]
     Active Substance: OFATUMUMAB
     Indication: Multiple sclerosis
     Dosage: UNK
     Route: 058

REACTIONS (8)
  - Blood pressure increased [Unknown]
  - Nasal congestion [Recovering/Resolving]
  - Pain [Recovering/Resolving]
  - Myalgia [Recovering/Resolving]
  - Fatigue [Unknown]
  - Headache [Recovering/Resolving]
  - Incorrect dose administered by device [Unknown]
  - Device malfunction [Unknown]
